FAERS Safety Report 7219310-8 (Version None)
Quarter: 2011Q1

REPORT INFORMATION
  Report Type: 
  Country: None (occurrence: None)
  Receive Date: 20110111
  Receipt Date: 20110104
  Transmission Date: 20110831
  Serious: No
  Sender: FDA-Public Use
  Company Number: US-PFIZER INC-2011002180

PATIENT
  Sex: Male
  Weight: 105 kg

DRUGS (6)
  1. LORTAB [Concomitant]
     Indication: BACK PAIN
     Dosage: 10/325 MG, 6X/DAY
     Route: 048
  2. SIMVASTATIN [Concomitant]
     Indication: BLOOD CHOLESTEROL INCREASED
     Dosage: 40 MG, 1X/DAY
     Route: 048
  3. CHANTIX [Suspect]
     Indication: SMOKING CESSATION THERAPY
     Dosage: 0.5 MG, 1X/DAY
     Route: 048
     Dates: start: 20101201, end: 20101201
  4. HYZAAR [Concomitant]
     Indication: BLOOD PRESSURE ABNORMAL
     Dosage: 100/25 MG, 1X/DAY
     Route: 048
  5. NORVASC [Concomitant]
     Indication: BLOOD PRESSURE ABNORMAL
     Dosage: 5 MG, 1X/DAY
     Route: 048
  6. CHANTIX [Suspect]
     Dosage: 1 MG, 2X/DAY
     Dates: start: 20101201, end: 20110103

REACTIONS (3)
  - ORAL PAIN [None]
  - OROPHARYNGEAL PAIN [None]
  - GINGIVAL PAIN [None]
